FAERS Safety Report 15003282 (Version 1)
Quarter: 2018Q2

REPORT INFORMATION
  Report Type: Spontaneous
  Country: US (occurrence: US)
  Receive Date: 20180613
  Receipt Date: 20180613
  Transmission Date: 20180711
  Serious: Yes (Other)
  Sender: FDA-Public Use
  Company Number: PHEH2018US022208

PATIENT
  Age: 26 Year
  Sex: Male

DRUGS (4)
  1. VIMPAT [Suspect]
     Active Substance: LACOSAMIDE
     Indication: GENERALISED TONIC-CLONIC SEIZURE
     Dosage: UNK UNK, QHS
     Route: 065
     Dates: start: 201506
  2. TEGRETOL [Suspect]
     Active Substance: CARBAMAZEPINE
     Indication: PRODUCT USED FOR UNKNOWN INDICATION
     Route: 065
  3. DEPAKOTE [Suspect]
     Active Substance: DIVALPROEX SODIUM
     Indication: AFFECTIVE DISORDER
     Route: 065
  4. KEPPRA [Suspect]
     Active Substance: LEVETIRACETAM
     Indication: PRODUCT USED FOR UNKNOWN INDICATION
     Route: 065

REACTIONS (14)
  - Dysarthria [Unknown]
  - Dizziness [Unknown]
  - Feeling abnormal [Unknown]
  - Generalised tonic-clonic seizure [Unknown]
  - Confusional state [Unknown]
  - Postictal state [Unknown]
  - Seizure [Unknown]
  - Aggression [Unknown]
  - Vertigo [Unknown]
  - Memory impairment [Unknown]
  - Tremor [Unknown]
  - Paralysis [Unknown]
  - Shock [Unknown]
  - Tongue biting [Unknown]

NARRATIVE: CASE EVENT DATE: 201410
